FAERS Safety Report 8885855 (Version 1)
Quarter: 2012Q4

REPORT INFORMATION
  Report Type: 
  Country: BE (occurrence: BE)
  Receive Date: 20121105
  Receipt Date: 20121105
  Transmission Date: 20130627
  Serious: Yes (Other)
  Sender: FDA-Public Use
  Company Number: BE-ASTRAZENECA-2012SE82414

PATIENT
  Age: 61 Year
  Sex: Male

DRUGS (3)
  1. NAROPIN [Suspect]
     Indication: MIGRAINE
     Dosage: 10 MG/ML
     Route: 037
     Dates: start: 201210
  2. MORPHINE [Concomitant]
     Indication: MIGRAINE
     Route: 037
  3. CATAPRESSANT [Concomitant]
     Indication: MIGRAINE
     Route: 037

REACTIONS (2)
  - Meningitis [Recovered/Resolved]
  - Off label use [Unknown]
